FAERS Safety Report 12883318 (Version 1)
Quarter: 2016Q4

REPORT INFORMATION
  Report Type: Spontaneous
  Country: US (occurrence: None)
  Receive Date: 20161024
  Receipt Date: 20161024
  Transmission Date: 20170207
  Serious: Yes (Other)
  Sender: FDA-Public Use
  Company Number: 2280705-2016-00020

PATIENT
  Age: 16 Month
  Sex: Female

DRUGS (1)
  1. ORAJEL TEETHING (HOMEOPATHIC) [Suspect]
     Active Substance: HOMEOPATHICS
     Indication: TEETHING
     Dosage: 2-3 UNKNOWN ORAL?8-10 TABLETS TOTAL
     Route: 048

REACTIONS (1)
  - Febrile convulsion [None]

NARRATIVE: CASE EVENT DATE: 20161001
